FAERS Safety Report 25329956 (Version 1)
Quarter: 2025Q2

REPORT INFORMATION
  Report Type: Spontaneous
  Country: BR (occurrence: BR)
  Receive Date: 20250519
  Receipt Date: 20250519
  Transmission Date: 20250716
  Serious: No
  Sender: ANI
  Company Number: BR-ANIPHARMA-022797

PATIENT
  Sex: Female

DRUGS (2)
  1. FLUVOXAMINE MALEATE [Suspect]
     Active Substance: FLUVOXAMINE MALEATE
     Indication: Obsessive-compulsive disorder
     Dates: start: 20220508
  2. MOTILEX [Concomitant]
     Indication: Product used for unknown indication

REACTIONS (1)
  - Fall [Unknown]
